FAERS Safety Report 10268903 (Version 1)
Quarter: 2014Q2

REPORT INFORMATION
  Report Type: Spontaneous
  Country: GB (occurrence: GB)
  Receive Date: 20140630
  Receipt Date: 20140630
  Transmission Date: 20141212
  Serious: Yes (Other)
  Sender: FDA-Public Use
  Company Number: GB-MYLANLABS-2014S1014481

PATIENT
  Age: 42 Year
  Sex: Female
  Weight: 130 kg

DRUGS (12)
  1. QUETIAPINE [Suspect]
     Dosage: 125MG IN THE MORNING + 175MG IN THE EVENING.
     Route: 048
  2. ZOPICLONE [Suspect]
     Route: 048
  3. RISPERIDONE [Suspect]
     Route: 048
  4. LORAZEPAM [Suspect]
     Dosage: UP TO 4MG IN 24 HOUR.
     Route: 048
  5. ORLISTAT [Concomitant]
     Route: 048
  6. RAMIPRIL [Concomitant]
     Route: 048
  7. LITHIUM [Concomitant]
     Route: 048
  8. PROCYCLIDINE [Concomitant]
     Route: 048
  9. VENLAFAXINE [Concomitant]
     Route: 048
  10. LEVOTHYROXINE [Concomitant]
     Route: 048
  11. MIRTAZAPINE [Concomitant]
     Route: 048
  12. FOLIC ACID [Concomitant]
     Route: 048

REACTIONS (1)
  - Sleep apnoea syndrome [Recovered/Resolved with Sequelae]
